FAERS Safety Report 14936961 (Version 1)
Quarter: 2018Q2

REPORT INFORMATION
  Report Type: Spontaneous
  Country: FR (occurrence: FR)
  Receive Date: 20180525
  Receipt Date: 20180525
  Transmission Date: 20180711
  Serious: Yes (Other)
  Sender: FDA-Public Use
  Company Number: FR-MERCK KGAA-2048426

PATIENT
  Age: 40 Year
  Sex: Female

DRUGS (1)
  1. NOVOTHYROX [Suspect]
     Active Substance: LEVOTHYROXINE SODIUM
     Indication: PRODUCT USED FOR UNKNOWN INDICATION

REACTIONS (21)
  - Proteinuria [None]
  - Dizziness [None]
  - Anxiety [None]
  - Nervousness [None]
  - Headache [None]
  - Decreased interest [None]
  - General physical health deterioration [None]
  - Self esteem decreased [None]
  - Disturbance in attention [None]
  - Head discomfort [None]
  - Apathy [None]
  - Muscle spasms [None]
  - Abnormal behaviour [None]
  - Irritability [None]
  - Alopecia [None]
  - Suicidal ideation [None]
  - Fatigue [None]
  - Loss of personal independence in daily activities [None]
  - Asthenia [None]
  - Blood thyroid stimulating hormone increased [None]
  - Sleep disorder [None]

NARRATIVE: CASE EVENT DATE: 20171024
